FAERS Safety Report 9109912 (Version 1)
Quarter: 2013Q1

REPORT INFORMATION
  Report Type: Report from Study
  Country: US (occurrence: US)
  Receive Date: 20130222
  Receipt Date: 20130222
  Transmission Date: 20140127
  Serious: Yes (Death, Life-Threatening, Hospitalization)
  Sender: FDA-Public Use
  Company Number: US-ROCHE-1191253

PATIENT
  Age: 38 Year
  Sex: Female
  Weight: 108 kg

DRUGS (2)
  1. BEVACIZUMAB [Suspect]
     Indication: OVARIAN CANCER
     Dosage: LAST DOSE PRIOR TO SAE 04/OCT/2012
     Route: 048
     Dates: start: 20120802
  2. EVEROLIMUS [Suspect]
     Indication: OVARIAN CANCER
     Dosage: LAST DOSE PRIOR TO SAE 04/OCT/2012
     Route: 048
     Dates: start: 20120802

REACTIONS (3)
  - Respiratory failure [Fatal]
  - Hydronephrosis [Unknown]
  - Large intestinal obstruction [Unknown]
